FAERS Safety Report 10060497 (Version 2)
Quarter: 2014Q2

REPORT INFORMATION
  Report Type: Spontaneous
  Country: US (occurrence: US)
  Receive Date: 20140404
  Receipt Date: 20140409
  Transmission Date: 20141212
  Serious: No
  Sender: FDA-Public Use
  Company Number: US-GILEAD-2014-0098690

PATIENT
  Sex: Female

DRUGS (3)
  1. LETAIRIS [Suspect]
     Indication: PRODUCT USED FOR UNKNOWN INDICATION
     Dosage: 5 MG, QD
     Route: 048
     Dates: start: 20130109
  2. REMODULIN [Concomitant]
  3. ADCIRCA [Concomitant]

REACTIONS (6)
  - Infusion site swelling [Unknown]
  - Unevaluable event [None]
  - Pain [Unknown]
  - Erythema [Unknown]
  - Local swelling [Unknown]
  - Swelling [Unknown]
